FAERS Safety Report 5901167-6 (Version None)
Quarter: 2008Q3

REPORT INFORMATION
  Report Type: 
  Country: None (occurrence: None)
  Receive Date: 20080929
  Receipt Date: 20080916
  Transmission Date: 20090109
  Serious: Yes (Other)
  Sender: FDA-Public Use
  Company Number: AE-ROCHE-586484

PATIENT
  Sex: Male

DRUGS (1)
  1. PEGASYS [Suspect]
     Dosage: STRENGTH REPORTED AS 180
     Route: 058

REACTIONS (3)
  - HYPOTENSION [None]
  - INFLUENZA LIKE ILLNESS [None]
  - VOMITING [None]
